FAERS Safety Report 5705641-7 (Version None)
Quarter: 2008Q2

REPORT INFORMATION
  Report Type: 
  Country: None (occurrence: None)
  Receive Date: 20080415
  Receipt Date: 20080404
  Transmission Date: 20081010
  Serious: Yes (Hospitalization)
  Sender: FDA-Public Use
  Company Number: DE-TEVA-169635ISR

PATIENT
  Sex: Female

DRUGS (2)
  1. FLUOROURACIL [Suspect]
  2. FLUOROURACIL [Suspect]

REACTIONS (2)
  - CHILLS [None]
  - PYREXIA [None]
